FAERS Safety Report 9865552 (Version 2)
Quarter: 2014Q1

REPORT INFORMATION
  Report Type: Spontaneous
  Country: US (occurrence: US)
  Receive Date: 20140203
  Receipt Date: 20140203
  Transmission Date: 20141002
  Serious: No
  Sender: FDA-Public Use
  Company Number: US-ALLERGAN-1309614US

PATIENT
  Sex: Female

DRUGS (6)
  1. RESTASIS [Suspect]
     Indication: DRY EYE
     Dosage: 2 GTT, UNK
     Route: 047
  2. SYSTANE [Concomitant]
     Indication: DRY EYE
     Dosage: 2 GTT, PRN
     Route: 047
  3. MINOCYCLINE [Concomitant]
     Indication: ACNE
     Dosage: UNK UNK, QD
     Route: 047
  4. TOPICAL MEDICATION NOS [Concomitant]
     Indication: ROSACEA
     Dosage: UNK, PRN
     Route: 061
  5. TOPICAL MEDICATION NOS [Concomitant]
     Indication: ECZEMA
  6. ALLERGY MEDICATION [Concomitant]
     Indication: HYPERSENSITIVITY
     Dosage: UNK, PRN
     Route: 048

REACTIONS (4)
  - Eye infection [Recovered/Resolved]
  - Sebaceous gland disorder [Recovered/Resolved]
  - Eye irritation [Recovered/Resolved]
  - Scleral hyperaemia [Not Recovered/Not Resolved]
